FAERS Safety Report 16600160 (Version 3)
Quarter: 2019Q3

REPORT INFORMATION
  Report Type: Spontaneous
  Country: PK (occurrence: PK)
  Receive Date: 20190720
  Receipt Date: 20190813
  Transmission Date: 20191004
  Serious: Yes (Other)
  Sender: FDA-Public Use
  Company Number: PK-BRISTOL-MYERS SQUIBB COMPANY-BMS-2019-070964

PATIENT
  Age: 22 Year
  Sex: Female

DRUGS (1)
  1. METFORMIN HYDROCHLORIDE. [Suspect]
     Active Substance: METFORMIN HYDROCHLORIDE
     Indication: POLYCYSTIC OVARIES
     Dosage: 500 MILLIGRAM, BID
     Route: 065

REACTIONS (6)
  - Therapeutic product cross-reactivity [Recovering/Resolving]
  - Headache [Recovering/Resolving]
  - Intentional product use issue [Unknown]
  - Arthralgia [Recovering/Resolving]
  - Hyperuricaemia [Recovering/Resolving]
  - Mood altered [Recovering/Resolving]
